FAERS Safety Report 23330671 (Version 1)
Quarter: 2023Q4

REPORT INFORMATION
  Report Type: Spontaneous
  Country: US (occurrence: US)
  Receive Date: 20231222
  Receipt Date: 20231222
  Transmission Date: 20240110
  Serious: Yes (Hospitalization, Other)
  Sender: FDA-Public Use
  Company Number: US-MLMSERVICE-20231208-4107782-1

PATIENT
  Age: 15 Year
  Sex: Male

DRUGS (13)
  1. CLOZAPINE [Interacting]
     Active Substance: CLOZAPINE
     Indication: Schizophrenia
     Dosage: 200 MG IN THE MORNING, 100 MG IN THE AFTERNOON, 250 MG IN EVENING
  2. FLUOXETINE [Interacting]
     Active Substance: FLUOXETINE HYDROCHLORIDE
     Indication: Schizophrenia
     Dosage: 40 MG IN THE MORNING, 20 MG IN THE EVENING
  3. ZIPRASIDONE HYDROCHLORIDE [Interacting]
     Active Substance: ZIPRASIDONE HYDROCHLORIDE
     Indication: Schizophrenia
     Dosage: DECREASED DAY 1
  4. CLOZAPINE [Interacting]
     Active Substance: CLOZAPINE
     Indication: Schizophrenia
     Dosage: DECREASED TO 100 MG IN THE MORNING, 200 MG IN EVENING
  5. CLOZAPINE [Interacting]
     Active Substance: CLOZAPINE
     Indication: Schizophrenia
     Dosage: 200 MG IN THE MORNING, 100 MG IN AFTERNOON, 250 MG IN EVENING
  6. CLOZAPINE [Interacting]
     Active Substance: CLOZAPINE
     Indication: Schizophrenia
     Dosage: 200 MG IN THE MORNING, 100 MG IN AFTERNOON, 250 MG IN EVENING
  7. CLOZAPINE [Interacting]
     Active Substance: CLOZAPINE
     Indication: Schizophrenia
     Dosage: DECREASED TO 100 MG IN THE MORNING, 200 MG IN EVENING, DAY 2
  8. CLOZAPINE [Interacting]
     Active Substance: CLOZAPINE
     Indication: Schizophrenia
     Dosage: DECREASED TO 100 MG IN THE MORNING, 50 MG IN EVENING, DAY 4
  9. CLOZAPINE [Interacting]
     Active Substance: CLOZAPINE
     Indication: Schizophrenia
     Dosage: 200 MG IN THE MORNING, OTHER DOSES HELD, DAY 1
  10. FLUOXETINE [Interacting]
     Active Substance: FLUOXETINE HYDROCHLORIDE
     Indication: Schizophrenia
     Dosage: DECRESED TO 40 MG DAILY, DAY 5
  11. FLUOXETINE [Interacting]
     Active Substance: FLUOXETINE HYDROCHLORIDE
     Indication: Schizophrenia
     Dosage: 40 MG IN THE MORNING, 20 MG IN THE EVENING
  12. CLOZAPINE [Interacting]
     Active Substance: CLOZAPINE
     Indication: Schizophrenia
     Dosage: DECREASED TO 50 MG TWICE DAILY, DAY 5
  13. CLOZAPINE [Interacting]
     Active Substance: CLOZAPINE
     Indication: Schizophrenia
     Dosage: DECREASED TO 100 MG IN THE MORNING, 50 MG IN EVENING

REACTIONS (4)
  - Delirium [Recovered/Resolved]
  - Drug interaction [Recovered/Resolved]
  - Antipsychotic drug level increased [Recovered/Resolved]
  - Malignant catatonia [Recovered/Resolved]
